FAERS Safety Report 5232535-6 (Version None)
Quarter: 2007Q1

REPORT INFORMATION
  Report Type: 
  Country: None (occurrence: None)
  Receive Date: 20070207
  Receipt Date: 20070205
  Transmission Date: 20070707
  Serious: Yes (Other)
  Sender: FDA-Public Use
  Company Number: US-GLAXOSMITHKLINE-A0638595A

PATIENT
  Age: 35 Year
  Sex: Female

DRUGS (10)
  1. TRIZIVIR [Suspect]
     Dosage: 1500MG PER DAY
     Route: 048
     Dates: start: 20070109
  2. VIRACEPT [Concomitant]
     Dosage: 2500MG PER DAY
     Route: 048
     Dates: start: 20070109
  3. DAPSONE [Concomitant]
  4. SYNTHROID [Concomitant]
  5. ALBUTEROL [Concomitant]
  6. MACROBID [Concomitant]
     Dates: start: 20061113, end: 20061120
  7. FLONASE [Concomitant]
  8. ALLEGRA [Concomitant]
  9. BIAXIN [Concomitant]
     Dates: start: 20061205, end: 20061215
  10. DIFLUCAN [Concomitant]
     Dates: start: 20061205

REACTIONS (2)
  - ABORTION SPONTANEOUS [None]
  - INTRA-UTERINE DEATH [None]
